FAERS Safety Report 10370194 (Version 1)
Quarter: 2014Q3

REPORT INFORMATION
  Report Type: Spontaneous
  Country: US (occurrence: None)
  Receive Date: 20140806
  Receipt Date: 20140806
  Transmission Date: 20150326
  Serious: Yes (Hospitalization)
  Sender: FDA-Public Use
  Company Number: None

PATIENT
  Age: 67 Year
  Sex: Female

DRUGS (1)
  1. CIPROFLOXACIN. [Suspect]
     Active Substance: CIPROFLOXACIN
     Indication: URINARY TRACT INFECTION
     Dosage: 1
     Route: 048
     Dates: start: 20140701, end: 20140708

REACTIONS (5)
  - Nausea [None]
  - Vomiting [None]
  - Oedema [None]
  - Abdominal pain [None]
  - Jaundice [None]

NARRATIVE: CASE EVENT DATE: 20140801
